FAERS Safety Report 4369053-3 (Version None)
Quarter: 2004Q2

REPORT INFORMATION
  Report Type: 
  Country: None (occurrence: None)
  Receive Date: 20040525
  Receipt Date: 20040512
  Transmission Date: 20050107
  Serious: Yes (Hospitalization, Disabling, Other)
  Sender: FDA-Public Use
  Company Number: 2003016890

PATIENT
  Age: 50 Year
  Sex: Male
  Weight: 115.2136 kg

DRUGS (7)
  1. LIPITOR [Suspect]
     Indication: BLOOD CHOLESTEROL INCREASED
     Dosage: 10 MG DAILY
     Dates: start: 20020520, end: 20020524
  2. AMLODIPINE BESYLATE [Concomitant]
  3. PREDNISONE TAB [Concomitant]
  4. KARVEA HCT (HYDROCHLOROTHIAZIDE, IRBESARTAN) [Concomitant]
  5. HYDROCHLOROTHIAZIDE [Concomitant]
  6. VALSARTAN (VALSARTAN) [Concomitant]
  7. ACETYLSALICYLIC ACID SRT [Concomitant]

REACTIONS (38)
  - ACTIVITIES OF DAILY LIVING IMPAIRED [None]
  - ANHEDONIA [None]
  - BACK PAIN [None]
  - CUSHINGOID [None]
  - DEHYDRATION [None]
  - DIFFICULTY IN WALKING [None]
  - DYSPHAGIA [None]
  - DYSPNOEA [None]
  - EMOTIONAL DISORDER [None]
  - ERECTILE DYSFUNCTION [None]
  - FATIGUE [None]
  - FEELING ABNORMAL [None]
  - FOOT DEFORMITY [None]
  - GAIT DISTURBANCE [None]
  - GASTRIC ULCER [None]
  - HEPATITIS [None]
  - HYPOKALAEMIA [None]
  - INJURY [None]
  - IRREGULAR SLEEP PHASE [None]
  - JOINT RANGE OF MOTION DECREASED [None]
  - MARITAL PROBLEM [None]
  - MENTAL DISORDER [None]
  - MOTOR DYSFUNCTION [None]
  - MUSCLE NECROSIS [None]
  - NEURODERMATITIS [None]
  - OEDEMA PERIPHERAL [None]
  - OESOPHAGEAL DISORDER [None]
  - POLYMYOSITIS [None]
  - POST PROCEDURAL PAIN [None]
  - PULMONARY FUNCTION TEST ABNORMAL [None]
  - RASH [None]
  - RASH SCALY [None]
  - RELATIONSHIP BREAKDOWN [None]
  - RENAL FAILURE [None]
  - RHABDOMYOLYSIS [None]
  - SEXUAL RELATIONSHIP CHANGE [None]
  - SKIN HYPERPIGMENTATION [None]
  - WEIGHT INCREASED [None]
